FAERS Safety Report 6394284-0 (Version None)
Quarter: 2009Q4

REPORT INFORMATION
  Report Type: 
  Country: None (occurrence: None)
  Receive Date: 20091008
  Receipt Date: 20091002
  Transmission Date: 20100525
  Serious: No
  Sender: FDA-Public Use
  Company Number: US-B.I. PHARMACEUTICALS,INC./RIDGEFIELD-2009-BP-11570BP

PATIENT

DRUGS (4)
  1. VIRAMUNE [Suspect]
     Indication: HIV INFECTION
     Dates: start: 20090301
  2. TRUVADA [Suspect]
     Indication: HIV INFECTION
     Dates: start: 20090301
  3. LIPITOR [Suspect]
     Dates: start: 20090601
  4. TYLENOL (CAPLET) [Concomitant]

REACTIONS (2)
  - ALANINE AMINOTRANSFERASE INCREASED [None]
  - ASPARTATE AMINOTRANSFERASE INCREASED [None]
